FAERS Safety Report 5095881-5 (Version None)
Quarter: 2006Q3

REPORT INFORMATION
  Report Type: 
  Country: None (occurrence: None)
  Receive Date: 20060727
  Receipt Date: 20060509
  Transmission Date: 20061208
  Serious: No
  Sender: FDA-Public Use
  Company Number: FACT0600240

PATIENT
  Age: 67 Year
  Sex: Female
  Weight: 68.5 kg

DRUGS (13)
  1. FACTIVE [Suspect]
     Indication: RESPIRATORY TRACT INFECTION BACTERIAL
     Dosage: 320 MG, QD, ORAL
     Route: 048
     Dates: start: 20060426, end: 20060507
  2. BENADRYL [Suspect]
     Indication: RASH
     Dosage: SEE IMAGE
     Route: 048
     Dates: start: 20060426
  3. BENADRYL [Suspect]
     Indication: RASH
     Dosage: SEE IMAGE
     Route: 048
     Dates: start: 20060501
  4. PREDNISONE [Suspect]
     Indication: PULMONARY CONGESTION
     Dosage: SEE IMAGE
     Route: 048
     Dates: start: 20060426, end: 20060429
  5. PREDNISONE [Suspect]
     Indication: PULMONARY CONGESTION
     Dosage: SEE IMAGE
     Route: 048
     Dates: start: 20060430, end: 20060503
  6. PREDNISONE [Suspect]
     Indication: PULMONARY CONGESTION
     Dosage: SEE IMAGE
     Route: 048
     Dates: start: 20060504, end: 20060507
  7. PREDNISONE [Suspect]
     Indication: PULMONARY CONGESTION
     Dosage: SEE IMAGE
     Route: 048
     Dates: start: 20060508
  8. ALBUTEROL SULFATE [Suspect]
     Indication: PULMONARY CONGESTION
     Dosage: 0.08 %, Q6HR
     Dates: start: 20060426
  9. PROTONIX [Concomitant]
  10. DIOVAN HCT [Concomitant]
  11. METFORMIN HCL [Concomitant]
  12. THEOPHYLLINE [Concomitant]
  13. SINGULAIR [Concomitant]

REACTIONS (2)
  - OEDEMA PERIPHERAL [None]
  - RASH GENERALISED [None]
